APPROVED DRUG PRODUCT: ZEMPLAR
Active Ingredient: PARICALCITOL
Strength: 0.005MG/ML (0.005MG/ML)
Dosage Form/Route: SOLUTION;INTRAVENOUS
Application: N020819 | Product #001 | TE Code: AP
Applicant: ABBVIE INC
Approved: Apr 17, 1998 | RLD: Yes | RS: Yes | Type: RX